FAERS Safety Report 15497999 (Version 2)
Quarter: 2019Q3

REPORT INFORMATION
  Report Type: Spontaneous
  Country: FR (occurrence: FR)
  Receive Date: 20181015
  Receipt Date: 20190814
  Transmission Date: 20191004
  Serious: Yes (Hospitalization, Other)
  Sender: FDA-Public Use
  Company Number: FR-AUROBINDO-AUR-APL-2018-050555

PATIENT

DRUGS (2)
  1. MEROPENEM. [Suspect]
     Active Substance: MEROPENEM
     Indication: INFECTION
     Dosage: 6 GRAM, UNK
     Route: 042
     Dates: start: 20180627, end: 20180808
  2. MEROPENEM. [Suspect]
     Active Substance: MEROPENEM
     Indication: OTITIS EXTERNA
     Dosage: 6 GRAM, ONCE A DAY
     Route: 042
     Dates: start: 20180627, end: 20180823

REACTIONS (1)
  - Pancytopenia [Recovered/Resolved]

NARRATIVE: CASE EVENT DATE: 201807
